FAERS Safety Report 6357789-4 (Version None)
Quarter: 2009Q3

REPORT INFORMATION
  Report Type: 
  Country: None (occurrence: None)
  Receive Date: 20090916
  Receipt Date: 20090908
  Transmission Date: 20100115
  Serious: Yes (Disabling)
  Sender: FDA-Public Use
  Company Number: US-BAYER-200932343NA

PATIENT
  Age: 37 Year
  Sex: Female

DRUGS (1)
  1. NEXAVAR [Suspect]
     Indication: THYROID CANCER
     Dosage: TOTAL DAILY DOSE: 800 MG  UNIT DOSE: 200 MG
     Route: 048
     Dates: start: 20090801

REACTIONS (3)
  - GAIT DISTURBANCE [None]
  - SKIN EXFOLIATION [None]
  - SKIN FISSURES [None]
